FAERS Safety Report 8422081-0 (Version None)
Quarter: 2012Q2

REPORT INFORMATION
  Report Type: 
  Country: None (occurrence: None)
  Receive Date: 20120323
  Receipt Date: 20110502
  Transmission Date: 20120825
  Serious: Yes (Hospitalization)
  Sender: FDA-Public Use
  Company Number: 163-21880-11021489

PATIENT
  Age: 60 Year
  Sex: Male

DRUGS (8)
  1. NEURONTIN [Concomitant]
  2. COUMADIN [Concomitant]
  3. REVLIMID [Suspect]
     Indication: MULTIPLE MYELOMA
     Dosage: 15 MG, QHS, PO
     Route: 048
     Dates: start: 20101001, end: 20110101
  4. ACYCLOVIR [Concomitant]
  5. OXYCODONE HCL [Concomitant]
  6. TRIAMTERENE/HCTZ (DYAZIDE) [Concomitant]
  7. ARANESP [Concomitant]
  8. AREDIA [Concomitant]

REACTIONS (2)
  - PULMONARY EMBOLISM [None]
  - DEEP VEIN THROMBOSIS [None]
